FAERS Safety Report 20636821 (Version 1)
Quarter: 2022Q1

REPORT INFORMATION
  Report Type: Spontaneous
  Country: US (occurrence: None)
  Receive Date: 20220324
  Receipt Date: 20220324
  Transmission Date: 20220423
  Serious: Yes (Disabling)
  Sender: FDA-Public Use
  Company Number: None

PATIENT
  Age: 41 Year
  Sex: Male
  Weight: 112.5 kg

DRUGS (1)
  1. EMGALITY [Suspect]
     Active Substance: GALCANEZUMAB-GNLM
     Indication: Typical aura without headache
     Dosage: OTHER QUANTITY : 1 INJECTION(S);?OTHER FREQUENCY : MONTHY;?OTHER ROUTE : INJECTION;?
     Route: 050
     Dates: start: 20220308, end: 20220324

REACTIONS (11)
  - Pain in extremity [None]
  - Pain in extremity [None]
  - Middle insomnia [None]
  - Headache [None]
  - Head discomfort [None]
  - Dizziness [None]
  - Dizziness [None]
  - Pain [None]
  - Swelling [None]
  - Anxiety [None]
  - Impaired quality of life [None]

NARRATIVE: CASE EVENT DATE: 20220310
